FAERS Safety Report 9195992 (Version 1)
Quarter: 2013Q1

REPORT INFORMATION
  Report Type: Report from Study
  Country: CA (occurrence: CA)
  Receive Date: 20130328
  Receipt Date: 20130328
  Transmission Date: 20140127
  Serious: Yes (Hospitalization, Other)
  Sender: FDA-Public Use
  Company Number: PHHY2013CA008940

PATIENT
  Age: 71 Year
  Sex: Female

DRUGS (3)
  1. CLOZARIL [Suspect]
     Dosage: UNK UKN, UNK
     Dates: start: 20040528, end: 20130128
  2. CLOZARIL [Suspect]
     Dosage: UNK UKN, UNK
  3. CLOZARIL [Suspect]
     Dosage: UNK UKN, UNK
     Dates: end: 20130209

REACTIONS (6)
  - Malaise [Unknown]
  - Lung neoplasm malignant [Unknown]
  - Tracheal cancer [Unknown]
  - Neoplasm malignant [Unknown]
  - Dysphagia [Unknown]
  - Pneumonia [Unknown]
